FAERS Safety Report 16662327 (Version 2)
Quarter: 2020Q1

REPORT INFORMATION
  Report Type: Report from Study
  Country: US (occurrence: US)
  Receive Date: 20190802
  Receipt Date: 20200129
  Transmission Date: 20200409
  Serious: No
  Sender: FDA-Public Use
  Company Number: US-EXELIXIS-CABO-19017998

PATIENT
  Age: 75 Year
  Sex: Male
  Weight: 87.98 kg

DRUGS (1)
  1. CABOMETYX [Suspect]
     Active Substance: CABOZANTINIB S-MALATE
     Indication: RENAL CANCER
     Dosage: 40 MG, QD
     Route: 048
     Dates: start: 20181220

REACTIONS (2)
  - Dehydration [Unknown]
  - Haemorrhage urinary tract [Unknown]

NARRATIVE: CASE EVENT DATE: 201812
